FAERS Safety Report 4344548-7 (Version None)
Quarter: 2004Q2

REPORT INFORMATION
  Report Type: 
  Country: None (occurrence: None)
  Receive Date: 20040422
  Receipt Date: 20040413
  Transmission Date: 20050107
  Serious: Yes (Hospitalization)
  Sender: FDA-Public Use
  Company Number: FR-MERCK-0404FRA00047

PATIENT
  Age: 82 Year
  Sex: Female

DRUGS (15)
  1. AMIKACIN SULFATE [Suspect]
     Indication: SEPSIS
     Route: 042
     Dates: start: 20040224, end: 20040311
  2. AMIODARONE HYDROCHLORIDE [Concomitant]
     Route: 048
  3. ASPIRIN LYSINE [Suspect]
     Route: 048
     Dates: start: 20040308
  4. PRIMAXIN [Suspect]
     Indication: SEPSIS
     Route: 041
     Dates: start: 20040224, end: 20040311
  5. CIPROFLOXACIN HYDROCHLORIDE [Suspect]
     Indication: SEPSIS
     Route: 048
     Dates: start: 20040224, end: 20040311
  6. FLUCONAZOLE [Suspect]
     Indication: CANDIDIASIS
     Route: 048
     Dates: start: 20040306, end: 20040308
  7. FLUCONAZOLE [Suspect]
     Route: 048
     Dates: start: 20040309
  8. GLOBULIN, IMMUNE [Concomitant]
     Indication: PEMPHIGUS
     Route: 041
     Dates: start: 20040226, end: 20040226
  9. GLOBULIN, IMMUNE [Concomitant]
     Route: 041
     Dates: start: 20040310, end: 20040310
  10. LEVOTHYROXINE SODIUM [Concomitant]
     Indication: HYPOTHYROIDISM
     Route: 048
  11. METHYLPREDNISOLONE SODIUM SUCCINATE [Concomitant]
     Indication: PEMPHIGUS
     Route: 048
     Dates: start: 20040201, end: 20040301
  12. METHYLPREDNISOLONE SODIUM SUCCINATE [Concomitant]
     Route: 048
     Dates: start: 20040302
  13. OMEPRAZOLE [Concomitant]
     Route: 048
  14. PHENOBARBITAL [Concomitant]
     Indication: EPILEPSY
     Route: 048
  15. VALACYCLOVIR HYDROCHLORIDE [Suspect]
     Indication: HERPES ZOSTER
     Route: 048
     Dates: start: 20040303

REACTIONS (10)
  - BLOOD CREATININE INCREASED [None]
  - CANDIDIASIS [None]
  - ERYTHEMA [None]
  - GAMMA-GLUTAMYLTRANSFERASE INCREASED [None]
  - HERPES ZOSTER [None]
  - NEUTROPHIL COUNT DECREASED [None]
  - PRURITUS [None]
  - SEPSIS [None]
  - URINARY TRACT INFECTION [None]
  - WHITE BLOOD CELL COUNT INCREASED [None]
